FAERS Safety Report 10671050 (Version 1)
Quarter: 2014Q4

REPORT INFORMATION
  Report Type: Spontaneous
  Country: US (occurrence: None)
  Receive Date: 20141219
  Receipt Date: 20141219
  Transmission Date: 20150529
  Serious: Yes (Hospitalization)
  Sender: FDA-Public Use
  Company Number: BR14-444-AE

PATIENT
  Age: 49 Year
  Sex: Male

DRUGS (1)
  1. BUPRENORPHINE + NALOXONE [Suspect]
     Active Substance: BUPRENORPHINE HYDROCHLORIDE\NALOXONE HYDROCHLORIDE
     Dosage: 3 TABLETS

REACTIONS (8)
  - Depression [None]
  - Drug dependence [None]
  - Abdominal discomfort [None]
  - Product substitution issue [None]
  - Mental disorder [None]
  - Drug ineffective [None]
  - Frustration [None]
  - Stress [None]
